FAERS Safety Report 10681587 (Version 1)
Quarter: 2014Q4

REPORT INFORMATION
  Report Type: Spontaneous
  Country: DE (occurrence: DE)
  Receive Date: 20141230
  Receipt Date: 20141230
  Transmission Date: 20150529
  Serious: Yes (Other)
  Sender: FDA-Public Use
  Company Number: DE-BAYER-2014-190663

PATIENT
  Age: 24 Year
  Sex: Female
  Weight: 54 kg

DRUGS (1)
  1. JAYDESS [Suspect]
     Active Substance: LEVONORGESTREL
     Dosage: 14 MCG/24HR, CONT
     Route: 015
     Dates: start: 20141104, end: 20141216

REACTIONS (8)
  - Dizziness [Recovered/Resolved]
  - Weight increased [Recovered/Resolved]
  - Abdominal pain lower [Recovered/Resolved]
  - Fluid retention [Recovered/Resolved]
  - Cardiovascular disorder [Recovered/Resolved]
  - Circulatory collapse [Recovered/Resolved]
  - Nausea [Not Recovered/Not Resolved]
  - Acne [Recovered/Resolved]

NARRATIVE: CASE EVENT DATE: 2014
